FAERS Safety Report 4981532-4 (Version None)
Quarter: 2006Q2

REPORT INFORMATION
  Report Type: 
  Country: None (occurrence: None)
  Receive Date: 20060424
  Receipt Date: 20050309
  Transmission Date: 20061013
  Serious: Yes (Hospitalization, Disabling)
  Sender: FDA-Public Use
  Company Number: US-MERCK-0503USA02066

PATIENT
  Age: 79 Year
  Sex: Female
  Weight: 57 kg

DRUGS (12)
  1. VIOXX [Suspect]
     Indication: OSTEOARTHRITIS
     Route: 048
     Dates: start: 20000106, end: 20040101
  2. VIOXX [Suspect]
     Route: 048
     Dates: start: 20011109, end: 20040101
  3. SYNTHROID [Concomitant]
     Indication: HYPOTHYROIDISM
     Route: 065
  4. FOSAMAX [Concomitant]
     Indication: OSTEOPOROSIS PROPHYLAXIS
     Route: 048
  5. EVISTA [Concomitant]
     Indication: HORMONE REPLACEMENT THERAPY
     Route: 065
     Dates: start: 20001201, end: 20030601
  6. ASPIRIN [Concomitant]
     Route: 065
     Dates: start: 20010101
  7. PREMARIN [Concomitant]
     Indication: HORMONE REPLACEMENT THERAPY
     Route: 065
     Dates: start: 19990101, end: 20000401
  8. PREMPRO [Concomitant]
     Indication: HORMONE REPLACEMENT THERAPY
     Route: 065
     Dates: start: 20000401, end: 20001001
  9. TYLENOL (CAPLET) [Concomitant]
     Indication: PAIN
     Route: 065
  10. MEPREDNISONE [Concomitant]
     Route: 065
  11. HYDROCODONE BITARTRATE [Concomitant]
     Indication: PAIN
     Route: 065
  12. HYDROCHLOROTHIAZIDE [Concomitant]
     Indication: FLUID RETENTION
     Route: 065
     Dates: start: 20000602, end: 20011210

REACTIONS (13)
  - ANGINA UNSTABLE [None]
  - ANXIETY DISORDER [None]
  - ARTERIOSCLEROSIS [None]
  - CHEST PAIN [None]
  - CORONARY ARTERY DISEASE [None]
  - DEPRESSION [None]
  - DYSPNOEA [None]
  - GASTRITIS ATROPHIC [None]
  - HYPERCHOLESTEROLAEMIA [None]
  - HYPOAESTHESIA [None]
  - HYPOTENSION [None]
  - ISCHAEMIC CARDIOMYOPATHY [None]
  - PERNICIOUS ANAEMIA [None]
